FAERS Safety Report 5731788-5 (Version None)
Quarter: 2008Q2

REPORT INFORMATION
  Report Type: 
  Country: None (occurrence: None)
  Receive Date: 20080508
  Receipt Date: 20080502
  Transmission Date: 20081010
  Serious: Yes (Hospitalization)
  Sender: FDA-Public Use
  Company Number: GB-ROCHE-562538

PATIENT
  Sex: Female
  Weight: 82.6 kg

DRUGS (2)
  1. ORLISTAT [Suspect]
     Indication: OBESITY
     Route: 048
     Dates: start: 20071110
  2. OMEPRAZOLE [Concomitant]
     Indication: HIATUS HERNIA
     Route: 048

REACTIONS (4)
  - CONTUSION [None]
  - FALL [None]
  - HEAD INJURY [None]
  - LACERATION [None]
